FAERS Safety Report 20112149 (Version 1)
Quarter: 2021Q4

REPORT INFORMATION
  Report Type: Spontaneous
  Country: CN (occurrence: None)
  Receive Date: 20211125
  Receipt Date: 20211125
  Transmission Date: 20220303
  Serious: Yes (Hospitalization)
  Sender: FDA-Public Use
  Company Number: CN-ROCHE-2961673

PATIENT
  Age: 39 Year
  Sex: Male
  Weight: 75 kg

DRUGS (4)
  1. MABTHERA [Suspect]
     Active Substance: RITUXIMAB
     Indication: Pemphigus
     Route: 041
     Dates: start: 20210918
  2. SULFAMETHOXAZOLE [Concomitant]
     Active Substance: SULFAMETHOXAZOLE
     Indication: Infection prophylaxis
     Route: 048
     Dates: start: 20210920
  3. ISONIAZID [Concomitant]
     Active Substance: ISONIAZID
     Indication: Antibiotic prophylaxis
     Route: 048
     Dates: start: 20210919
  4. PREDNISOLONE ACETATE [Concomitant]
     Active Substance: PREDNISOLONE ACETATE
     Indication: Pemphigus
     Route: 048
     Dates: start: 20210831

REACTIONS (2)
  - Intestinal obstruction [Recovering/Resolving]
  - Off label use [Unknown]

NARRATIVE: CASE EVENT DATE: 20210929
